FAERS Safety Report 22661719 (Version 1)
Quarter: 2023Q2

REPORT INFORMATION
  Report Type: Report from Study
  Country: US (occurrence: US)
  Receive Date: 20230630
  Receipt Date: 20230630
  Transmission Date: 20230721
  Serious: Yes (Hospitalization, Other)
  Sender: FDA-Public Use
  Company Number: US-PFIZER INC-PV202300110783

PATIENT
  Age: 67 Year
  Sex: Female
  Weight: 52.9 kg

DRUGS (2)
  1. BINIMETINIB [Suspect]
     Active Substance: BINIMETINIB
     Dosage: 30 MG
     Dates: start: 20230518, end: 20230531
  2. ZEN-003694 [Suspect]
     Active Substance: ZEN-003694
     Dosage: 48 MG
     Dates: start: 20230518, end: 20230531

REACTIONS (1)
  - Skin infection [Recovered/Resolved]

NARRATIVE: CASE EVENT DATE: 20230601
